FAERS Safety Report 15795801 (Version 1)
Quarter: 2019Q1

REPORT INFORMATION
  Report Type: Spontaneous
  Country: ES (occurrence: ES)
  Receive Date: 20190107
  Receipt Date: 20190107
  Transmission Date: 20190417
  Serious: Yes (Hospitalization)
  Sender: FDA-Public Use
  Company Number: ES-ELI_LILLY_AND_COMPANY-ES201901002362

PATIENT
  Age: 57 Year
  Sex: Male

DRUGS (2)
  1. XERISTAR 30MG [Suspect]
     Active Substance: DULOXETINE HYDROCHLORIDE
     Indication: NEURALGIA
     Dosage: 30 MG, DAILY
     Route: 048
     Dates: start: 20181130, end: 20181211
  2. DEPRAX [FLUOXETINE HYDROCHLORIDE] [Suspect]
     Active Substance: FLUOXETINE HYDROCHLORIDE
     Indication: NEURALGIA
     Dosage: 100 MG, DAILY
     Route: 048
     Dates: start: 20181123, end: 20181213

REACTIONS (2)
  - Off label use [Unknown]
  - Hepatitis cholestatic [Unknown]

NARRATIVE: CASE EVENT DATE: 20181130
